FAERS Safety Report 5705213-4 (Version None)
Quarter: 2008Q2

REPORT INFORMATION
  Report Type: 
  Country: None (occurrence: None)
  Receive Date: 20080410
  Receipt Date: 20080327
  Transmission Date: 20081010
  Serious: Yes (Hospitalization)
  Sender: FDA-Public Use
  Company Number: E2020-01999-SPO-JP

PATIENT
  Age: 83 Year
  Sex: Female
  Weight: 57.3 kg

DRUGS (11)
  1. ARICEPT [Suspect]
     Indication: DEMENTIA ALZHEIMER'S TYPE
     Dosage: 5 MG, 1 IN 1 D, ORAL; 2.5 MG, 1 IN 1 D, ORAL
     Route: 048
     Dates: start: 20020314, end: 20071112
  2. ARICEPT [Suspect]
     Indication: DEMENTIA ALZHEIMER'S TYPE
     Dosage: 5 MG, 1 IN 1 D, ORAL; 2.5 MG, 1 IN 1 D, ORAL
     Route: 048
     Dates: start: 20071113, end: 20071114
  3. ASPIRIN [Suspect]
     Indication: CEREBRAL INFARCTION
     Dosage: 100 MG, 1 IN 1 D, ORAL
     Route: 048
     Dates: start: 20040206, end: 20071126
  4. ASPIRIN [Suspect]
     Indication: PROPHYLAXIS
     Dosage: 100 MG, 1 IN 1 D, ORAL
     Route: 048
     Dates: start: 20040206, end: 20071126
  5. LASIX [Suspect]
     Indication: OEDEMA DUE TO CARDIAC DISEASE
     Dosage: 20 MG, 1 IN 1 D, ORAL
     Route: 048
     Dates: start: 20021030
  6. TIAPRIAM (TIAPRIDE HYDROCHLORIDE) (TIAPRIDE HYDROCHLORIDE) [Suspect]
     Indication: CEREBRAL INFARCTION
     Dosage: 50 MG, 2 IN 1 D, ORAL
     Route: 048
     Dates: start: 20070508, end: 20071115
  7. GRISEOFULVIN [Suspect]
     Indication: TINEA INFECTION
     Dosage: 3 IN 1 D, ORAL
     Route: 048
     Dates: start: 20071002, end: 20071115
  8. NITROGLYCERIN [Suspect]
     Indication: CEREBRAL INFARCTION
     Dosage: 1 DF ^OD^, 1 IN 1 D
     Dates: start: 20070322, end: 20071126
  9. LANIRAPID (METILDIGOXIN) [Concomitant]
  10. ORIVATE (OXIBUTYNIN HYDROCHLORIDE) (OXYBUTYNIN HYDROCHLORIDE) [Concomitant]
  11. MAGMITT (MAGNESIUM OXIDE) (MAGNESIUM OXIDE) [Concomitant]

REACTIONS (10)
  - ABASIA [None]
  - DECREASED APPETITE [None]
  - GAIT DISTURBANCE [None]
  - IRRITABILITY [None]
  - MYOCARDIAL INFARCTION [None]
  - OEDEMA PERIPHERAL [None]
  - PAIN IN EXTREMITY [None]
  - PARKINSONISM [None]
  - POSTURE ABNORMAL [None]
  - RHABDOMYOLYSIS [None]
